FAERS Safety Report 22224450 (Version 1)
Quarter: 2023Q2

REPORT INFORMATION
  Report Type: Spontaneous
  Country: US (occurrence: None)
  Receive Date: 20230417
  Receipt Date: 20230417
  Transmission Date: 20230721
  Serious: Yes (Disabling, Other)
  Sender: FDA-Public Use
  Company Number: None

PATIENT
  Age: 54 Year
  Sex: Female

DRUGS (1)
  1. VISMODEGIB [Suspect]
     Active Substance: VISMODEGIB
     Indication: Basal cell carcinoma
     Dosage: FREQUENCY : DAILY;?
     Route: 048
     Dates: start: 20220601, end: 20230213

REACTIONS (6)
  - Multiple sclerosis [None]
  - White matter lesion [None]
  - Pleocytosis [None]
  - Blood immunoglobulin G increased [None]
  - CSF oligoclonal band [None]
  - White matter lesion [None]
